FAERS Safety Report 20115946 (Version 2)
Quarter: 2021Q4

REPORT INFORMATION
  Report Type: Spontaneous
  Country: US (occurrence: US)
  Receive Date: 20211126
  Receipt Date: 20211208
  Transmission Date: 20220303
  Serious: Yes (Life-Threatening, Hospitalization, Other)
  Sender: FDA-Public Use
  Company Number: US-DENTSPLY-2021SCDP000345

PATIENT
  Age: 15 Month
  Sex: Female

DRUGS (1)
  1. LIDOCAINE\PRILOCAINE [Suspect]
     Active Substance: LIDOCAINE\PRILOCAINE
     Indication: Product used for unknown indication
     Dosage: TUBE OF 2.5% LIDOCAINE/2.5% PRILOCAINE CREAM
     Route: 048

REACTIONS (8)
  - Status epilepticus [Recovered/Resolved]
  - Hypoxia [Recovered/Resolved]
  - Non-cardiogenic pulmonary oedema [Recovered/Resolved]
  - Respiratory failure [Recovered/Resolved]
  - Accidental exposure to product by child [Recovered/Resolved]
  - Generalised tonic-clonic seizure [Recovered/Resolved]
  - Methaemoglobinaemia [Recovered/Resolved]
  - Local anaesthetic systemic toxicity [Recovered/Resolved]
